FAERS Safety Report 5804675-1 (Version None)
Quarter: 2008Q3

REPORT INFORMATION
  Report Type: 
  Country: None (occurrence: None)
  Receive Date: 20080709
  Receipt Date: 20080707
  Transmission Date: 20090109
  Serious: Yes (Other)
  Sender: FDA-Public Use
  Company Number: CN-BAYER-200821298GPV

PATIENT
  Age: 70 Year
  Sex: Female

DRUGS (2)
  1. NIMOTOP [Suspect]
     Indication: SUBARACHNOID HAEMORRHAGE
     Dosage: TOTAL DAILY DOSE: 10 MG  UNIT DOSE: 10 MG
     Route: 042
     Dates: start: 20080602, end: 20080608
  2. NIMOTOP [Suspect]
     Route: 048
     Dates: start: 20080609, end: 20080617

REACTIONS (2)
  - HYPERPYREXIA [None]
  - PLEURAL EFFUSION [None]
